FAERS Safety Report 6552881-3 (Version None)
Quarter: 2010Q1

REPORT INFORMATION
  Report Type: 
  Country: None (occurrence: None)
  Receive Date: 20100122
  Receipt Date: 20100112
  Transmission Date: 20100710
  Serious: Yes (Other)
  Sender: FDA-Public Use
  Company Number: 310002L10ISR

PATIENT
  Age: 30 Year
  Sex: Female

DRUGS (2)
  1. CONAL-F (FOLLITROPIN ALFA) [Suspect]
     Dosage: 150 IU, 1 IN 1 DAYS
  2. DECAPEPTYL CR (GONADORELIN /00486501/) [Concomitant]

REACTIONS (3)
  - ABORTION SPONTANEOUS [None]
  - MULTIPLE PREGNANCY [None]
  - PREMATURE RUPTURE OF MEMBRANES [None]
